FAERS Safety Report 7074065-5 (Version None)
Quarter: 2010Q4

REPORT INFORMATION
  Report Type: 
  Country: None (occurrence: None)
  Receive Date: 20101029
  Receipt Date: 20101026
  Transmission Date: 20110411
  Serious: Yes (Hospitalization)
  Sender: FDA-Public Use
  Company Number: PL-ROCHE-729997

PATIENT
  Sex: Male
  Weight: 81 kg

DRUGS (2)
  1. BEVACIZUMAB [Suspect]
     Route: 042
     Dates: start: 20100729, end: 20100916
  2. TEMSIROLIMUS [Suspect]
     Route: 042
     Dates: start: 20100729, end: 20100916

REACTIONS (2)
  - CHOLECYSTITIS [None]
  - HAEMORRHOIDS [None]
